FAERS Safety Report 14980505 (Version 4)
Quarter: 2019Q2

REPORT INFORMATION
  Report Type: Spontaneous
  Country: US (occurrence: US)
  Receive Date: 20180606
  Receipt Date: 20190422
  Transmission Date: 20190711
  Serious: Yes (Hospitalization)
  Sender: FDA-Public Use
  Company Number: US-PFIZER INC-2018228581

PATIENT
  Age: 78 Year
  Sex: Female
  Weight: 52.16 kg

DRUGS (8)
  1. ARTHROTEC [Suspect]
     Active Substance: DICLOFENAC SODIUM\MISOPROSTOL
     Dosage: 50 MG, 1X/DAY
     Dates: start: 201209
  2. ATORVASTATIN [Concomitant]
     Active Substance: ATORVASTATIN
     Dosage: 10 MG, 1X/DAY
     Dates: start: 201409
  3. ARTHROTEC [Suspect]
     Active Substance: DICLOFENAC SODIUM\MISOPROSTOL
     Indication: RHEUMATOID ARTHRITIS
     Dosage: 1 DF, DAILY
     Dates: start: 2018
  4. LOSARTAN. [Concomitant]
     Active Substance: LOSARTAN
     Indication: BLOOD PRESSURE ABNORMAL
     Dosage: 25 MG, UNK
  5. ARTHROTEC [Suspect]
     Active Substance: DICLOFENAC SODIUM\MISOPROSTOL
     Indication: OSTEOARTHRITIS
     Dosage: UNK
     Dates: end: 2018
  6. ARTHROTEC [Suspect]
     Active Substance: DICLOFENAC SODIUM\MISOPROSTOL
     Indication: ARTHRITIS
     Dosage: 50 MG, 1X/DAY (ONE AT NIGHT)
  7. LOSARTAN. [Concomitant]
     Active Substance: LOSARTAN
     Dosage: 25 MG, 2X/DAY
     Dates: start: 201209
  8. ATORVASTATIN [Concomitant]
     Active Substance: ATORVASTATIN
     Indication: BLOOD CHOLESTEROL INCREASED
     Dosage: 10 MG, UNK

REACTIONS (5)
  - Muscular weakness [Not Recovered/Not Resolved]
  - Arthritis [Not Recovered/Not Resolved]
  - Condition aggravated [Not Recovered/Not Resolved]
  - Spinal stenosis [Not Recovered/Not Resolved]
  - Drug ineffective [Not Recovered/Not Resolved]

NARRATIVE: CASE EVENT DATE: 201209
